FAERS Safety Report 8258265-4 (Version None)
Quarter: 2012Q2

REPORT INFORMATION
  Report Type: 
  Country: None (occurrence: None)
  Receive Date: 20120403
  Receipt Date: 20120403
  Transmission Date: 20120825
  Serious: Yes (Hospitalization, Other)
  Sender: FDA-Public Use
  Company Number: None

PATIENT
  Age: 51 Year
  Sex: Female
  Weight: 56.6996 kg

DRUGS (2)
  1. SIMVASTATIN [Suspect]
     Indication: BLOOD CHOLESTEROL
     Dosage: 20 MG SIMVASTATIN 1 DAILY PRESCRIBED
     Dates: start: 20120311
  2. SIMVASTATIN [Suspect]
     Indication: BLOOD CHOLESTEROL
     Dosage: 20 MG SIMVASTATIN 1 DAILY PRESCRIBED
     Dates: start: 20120320

REACTIONS (2)
  - SWELLING FACE [None]
  - LIP SWELLING [None]
